FAERS Safety Report 7238643-2 (Version None)
Quarter: 2011Q1

REPORT INFORMATION
  Report Type: 
  Country: None (occurrence: None)
  Receive Date: 20110121
  Receipt Date: 20110113
  Transmission Date: 20110831
  Serious: No
  Sender: FDA-Public Use
  Company Number: US-B.I. PHARMACEUTICALS,INC./RIDGEFIELD-2010-BP-14600BP

PATIENT
  Age: 65 Year
  Sex: Male
  Weight: 100.24 kg

DRUGS (15)
  1. NITROGLYCERIN [Concomitant]
  2. PRADAXA [Suspect]
     Dosage: 150 MG
     Dates: start: 20101213
  3. ALLOPURINOL [Concomitant]
     Dosage: 12.5 MG
  4. M.V.I. [Concomitant]
  5. POTASSIUM [Concomitant]
     Dosage: 20 MEQ
  6. SIMVASTATIN [Concomitant]
     Dosage: 80 MG
  7. COREG [Concomitant]
     Dosage: 100 MG
  8. OMEPRAZOLE [Concomitant]
     Dosage: 75 MG
  9. PLAVIX [Concomitant]
     Dosage: 20 MG
  10. PRADAXA [Suspect]
     Indication: ATRIAL FIBRILLATION
     Dosage: 300 MG
     Dates: start: 20101202
  11. SPIRIVA [Concomitant]
     Dosage: 18 MCG
  12. FISH OIL [Concomitant]
  13. ZOLOFT [Concomitant]
     Dosage: 0.4 MG
  14. TORSEMIDE [Concomitant]
     Dosage: 20 MG
  15. FOLIC ACID [Concomitant]

REACTIONS (3)
  - INTERNATIONAL NORMALISED RATIO INCREASED [None]
  - FEELING ABNORMAL [None]
  - GINGIVAL BLEEDING [None]
